FAERS Safety Report 25322174 (Version 3)
Quarter: 2025Q3

REPORT INFORMATION
  Report Type: Spontaneous
  Country: JP (occurrence: JP)
  Receive Date: 20250516
  Receipt Date: 20250710
  Transmission Date: 20251020
  Serious: Yes (Death, Other)
  Sender: GLAXOSMITHKLINE
  Company Number: JP-GSKJP-JP2025JPN059297AA

PATIENT
  Sex: Female

DRUGS (11)
  1. DAPRODUSTAT [Suspect]
     Active Substance: DAPRODUSTAT
  2. DAPRODUSTAT [Suspect]
     Active Substance: DAPRODUSTAT
  3. DAPRODUSTAT [Suspect]
     Active Substance: DAPRODUSTAT
  4. AMIODARONE [Concomitant]
     Active Substance: AMIODARONE
     Dosage: 1 DF, 1D
  5. ATORVASTATIN [Concomitant]
     Active Substance: ATORVASTATIN
     Dosage: 1 DF, 1D
  6. EZETIMIBE [Concomitant]
     Active Substance: EZETIMIBE
     Dosage: 1 DF, 1D
  7. LEVOTHYROXINE [Concomitant]
     Active Substance: LEVOTHYROXINE
     Dosage: 1 DF, 1D
  8. POTASSIUM CHLORIDE [Concomitant]
     Active Substance: POTASSIUM CHLORIDE
     Dosage: 1 DF, 1D
  9. ELIQUIS [Concomitant]
     Active Substance: APIXABAN
     Dosage: 1 DF, 1D
  10. ENTRESTO [Concomitant]
     Active Substance: SACUBITRIL\VALSARTAN
     Dosage: 1 DF, BID
  11. CALCIUM CARBONATE\CHOLECALCIFEROL\MAGNESIUM CARBONATE [Concomitant]
     Active Substance: CALCIUM CARBONATE\CHOLECALCIFEROL\MAGNESIUM CARBONATE

REACTIONS (1)
  - Death [Fatal]

NARRATIVE: CASE EVENT DATE: 20250301
